FAERS Safety Report 21661184 (Version 1)
Quarter: 2022Q4

REPORT INFORMATION
  Report Type: Spontaneous
  Country: US (occurrence: US)
  Receive Date: 20221130
  Receipt Date: 20221130
  Transmission Date: 20230113
  Serious: Yes (Hospitalization, Other)
  Sender: FDA-Public Use
  Company Number: US-GLAXOSMITHKLINE-USCH2022GSK046666

PATIENT

DRUGS (3)
  1. IBUPROFEN [Suspect]
     Active Substance: IBUPROFEN
     Indication: Product used for unknown indication
     Dosage: UNK
  2. ACETAZOLAMIDE [Suspect]
     Active Substance: ACETAZOLAMIDE
     Indication: Product used for unknown indication
     Dosage: UNK
  3. CISPLATIN [Concomitant]
     Active Substance: CISPLATIN
     Indication: Cervix carcinoma
     Dosage: UNK

REACTIONS (8)
  - Tubulointerstitial nephritis [Unknown]
  - Flank pain [Unknown]
  - Pollakiuria [Unknown]
  - Acute kidney injury [Unknown]
  - Hydronephrosis [Unknown]
  - Renal tubular necrosis [Unknown]
  - Disease recurrence [Unknown]
  - Bullous oedema of the bladder [Unknown]
